FAERS Safety Report 17373172 (Version 2)
Quarter: 2020Q1

REPORT INFORMATION
  Report Type: Report from Study
  Country: DO (occurrence: DO)
  Receive Date: 20200205
  Receipt Date: 20200217
  Transmission Date: 20200409
  Serious: Yes (Other)
  Sender: FDA-Public Use
  Company Number: NVSC2020DO028088

PATIENT
  Age: 45 Year
  Sex: Female

DRUGS (2)
  1. VYMADA [Suspect]
     Active Substance: SACUBITRIL\VALSARTAN
     Indication: PRODUCT USED FOR UNKNOWN INDICATION
     Dosage: 50 MG, UNKNOWN
     Route: 065
     Dates: start: 201905
  2. VYMADA [Suspect]
     Active Substance: SACUBITRIL\VALSARTAN
     Dosage: 100 MG, UNKNOWN
     Route: 065
     Dates: start: 201907

REACTIONS (4)
  - Drug intolerance [Unknown]
  - Cold sweat [Unknown]
  - Syncope [Unknown]
  - Asthenia [Unknown]
